FAERS Safety Report 16335118 (Version 1)
Quarter: 2019Q2

REPORT INFORMATION
  Report Type: Report from Study
  Country: US (occurrence: US)
  Receive Date: 20190521
  Receipt Date: 20190521
  Transmission Date: 20190711
  Serious: Yes (Hospitalization)
  Sender: FDA-Public Use
  Company Number: US-BIOGEN-2019BI00738826

PATIENT
  Age: 43 Year
  Sex: Female

DRUGS (1)
  1. TECFIDERA [Suspect]
     Active Substance: DIMETHYL FUMARATE
     Indication: MULTIPLE SCLEROSIS
     Route: 048
     Dates: start: 20180523

REACTIONS (5)
  - Muscle spasms [Unknown]
  - Infection [Unknown]
  - Hypoaesthesia [Unknown]
  - Peroneal nerve palsy [Unknown]
  - Monoparesis [Unknown]

NARRATIVE: CASE EVENT DATE: 20190305
